FAERS Safety Report 18007056 (Version 1)
Quarter: 2020Q3

REPORT INFORMATION
  Report Type: Spontaneous
  Country: US (occurrence: US)
  Receive Date: 20200710
  Receipt Date: 20200710
  Transmission Date: 20201103
  Serious: No
  Sender: FDA-Public Use
  Company Number: None

PATIENT
  Age: 71 Year
  Sex: Male
  Weight: 119.7 kg

DRUGS (22)
  1. BACTRIM [Concomitant]
     Active Substance: SULFAMETHOXAZOLE\TRIMETHOPRIM
  2. MYRBETRIQ [Concomitant]
     Active Substance: MIRABEGRON
  3. ASPIRIN. [Concomitant]
     Active Substance: ASPIRIN
  4. LASIX [Concomitant]
     Active Substance: FUROSEMIDE
  5. PREDNISONE. [Concomitant]
     Active Substance: PREDNISONE
  6. VENLAFAXINE [Concomitant]
     Active Substance: VENLAFAXINE HYDROCHLORIDE
  7. IMIQUIMOD. [Concomitant]
     Active Substance: IMIQUIMOD
  8. ZOCOR [Concomitant]
     Active Substance: SIMVASTATIN
  9. LINZESS [Concomitant]
     Active Substance: LINACLOTIDE
  10. ABIRATERONE. [Suspect]
     Active Substance: ABIRATERONE ACETATE
     Indication: BONE NEOPLASM
     Route: 048
     Dates: start: 20200526
  11. OXYBUTYNIN. [Concomitant]
     Active Substance: OXYBUTYNIN CHLORIDE
  12. PHENAZOPYRIDINE. [Concomitant]
     Active Substance: PHENAZOPYRIDINE
  13. DICLOFENAC TOPICAL [Concomitant]
  14. ALLOPURINOL. [Concomitant]
     Active Substance: ALLOPURINOL
  15. ZOFRAN [Concomitant]
     Active Substance: ONDANSETRON HYDROCHLORIDE
  16. HYDROMORPHONE [Concomitant]
     Active Substance: HYDROMORPHONE
  17. LYRICA [Concomitant]
     Active Substance: PREGABALIN
  18. PRESERVISION [Concomitant]
     Active Substance: MINERALS\VITAMINS
  19. CLONAZEPAM. [Concomitant]
     Active Substance: CLONAZEPAM
  20. ESOMEPRAZOLE. [Concomitant]
     Active Substance: ESOMEPRAZOLE MAGNESIUM
  21. HCTZ [Concomitant]
     Active Substance: HYDROCHLOROTHIAZIDE
  22. CALCIUM 600 [Concomitant]
     Active Substance: CALCIUM

REACTIONS (1)
  - Hot flush [None]

NARRATIVE: CASE EVENT DATE: 20200710
